FAERS Safety Report 19881101 (Version 1)
Quarter: 2021Q3

REPORT INFORMATION
  Report Type: Spontaneous
  Country: DE (occurrence: DE)
  Receive Date: 20210924
  Receipt Date: 20210924
  Transmission Date: 20211014
  Serious: Yes (Other)
  Sender: FDA-Public Use
  Company Number: DE-TEVA-2021-DE-1955925

PATIENT
  Age: 1 Day
  Sex: Male

DRUGS (5)
  1. DULOXETIN [Suspect]
     Active Substance: DULOXETINE
     Indication: DEPRESSION
     Dosage: 120 [MG / D (UP TO 60)] , ADDITIONAL INFO : 0. ? 37.4. GESTATIONAL WEEK
     Route: 064
     Dates: start: 20200217, end: 20201106
  2. PROTAPHANE [Concomitant]
     Active Substance: INSULIN HUMAN
     Indication: GESTATIONAL DIABETES
     Dosage: ADDITIONAL INFO : TRIMESTER: 3RD
     Route: 064
  3. OLANZAPINE. [Suspect]
     Active Substance: OLANZAPINE
     Indication: BIPOLAR DISORDER
     Dosage: 5 MILLIGRAM DAILY; ADDITIONAL INFO : 0. ? 37.4. GESTATIONAL WEEK
     Route: 064
     Dates: start: 20200217, end: 20201106
  4. METHYLDOPA. [Suspect]
     Active Substance: METHYLDOPA
     Indication: HYPERTENSION
     Dosage: 1500 [MG / D (UP TO 750)] ,ADDITIONAL INFO : 0. ? 37.4. GESTATIONAL WEEK
     Route: 064
     Dates: start: 20200217, end: 20201106
  5. NOVORAPID [Concomitant]
     Active Substance: INSULIN ASPART
     Indication: GESTATIONAL DIABETES
     Dosage: ADDITIONAL INFO : TRIMESTER: 3RD
     Route: 064

REACTIONS (5)
  - Myoclonus [Recovered/Resolved]
  - Selective eating disorder [Recovered/Resolved]
  - Agitation neonatal [Recovered/Resolved]
  - Respiratory disorder neonatal [Recovered/Resolved]
  - Foetal exposure during pregnancy [Unknown]

NARRATIVE: CASE EVENT DATE: 20200217
